FAERS Safety Report 11125249 (Version 1)
Quarter: 2015Q2

REPORT INFORMATION
  Report Type: Report from Study
  Country: SE (occurrence: SE)
  Receive Date: 20150520
  Receipt Date: 20150520
  Transmission Date: 20150821
  Serious: Yes (Death, Hospitalization)
  Sender: FDA-Public Use
  Company Number: SE-ABBVIE-15P-150-1393412-00

PATIENT
  Age: 75 Year
  Sex: Female

DRUGS (1)
  1. DUODOPA [Suspect]
     Active Substance: CARBIDOPA\LEVODOPA
     Indication: PARKINSON^S DISEASE
     Dosage: 24H TREATMENT DOSAGE DURING LAST DAYS: MD 5.4 ML, CD 2 ML/H,ED 1 ML/H
     Route: 050
     Dates: start: 20061212, end: 20150515

REACTIONS (3)
  - General physical health deterioration [Not Recovered/Not Resolved]
  - Device leakage [Recovered/Resolved]
  - Depressed level of consciousness [Fatal]

NARRATIVE: CASE EVENT DATE: 20150503
